FAERS Safety Report 7393949-1 (Version None)
Quarter: 2011Q2

REPORT INFORMATION
  Report Type: 
  Country: None (occurrence: None)
  Receive Date: 20110405
  Receipt Date: 20110324
  Transmission Date: 20111010
  Serious: Yes (Other)
  Sender: FDA-Public Use
  Company Number: US-JNJFOC-20110310560

PATIENT

DRUGS (1)
  1. PREZISTA [Suspect]
     Indication: HIV INFECTION
     Route: 065

REACTIONS (1)
  - CUSHINGOID [None]
